FAERS Safety Report 6715541-1 (Version None)
Quarter: 2010Q2

REPORT INFORMATION
  Report Type: 
  Country: None (occurrence: None)
  Receive Date: 20100507
  Receipt Date: 20100428
  Transmission Date: 20101027
  Serious: Yes (Hospitalization)
  Sender: FDA-Public Use
  Company Number: DE-ROCHE-697035

PATIENT
  Sex: Male
  Weight: 55 kg

DRUGS (4)
  1. ROACTEMRA [Suspect]
     Route: 042
     Dates: start: 20090301, end: 20090727
  2. ROACTEMRA [Suspect]
     Dosage: LAST APPLICATION PRIOR TO EVENT ON 17 FEB 2010
     Route: 042
     Dates: start: 20091222
  3. AZATHIOPRIN [Suspect]
     Indication: DRUG USE FOR UNKNOWN INDICATION
     Route: 048
     Dates: start: 19970401
  4. PREDNISONE [Suspect]
     Indication: DRUG USE FOR UNKNOWN INDICATION
     Route: 048
     Dates: start: 19940501

REACTIONS (1)
  - BURSITIS [None]
